FAERS Safety Report 24937252 (Version 1)
Quarter: 2025Q1

REPORT INFORMATION
  Report Type: Spontaneous
  Country: US (occurrence: US)
  Receive Date: 20250206
  Receipt Date: 20250206
  Transmission Date: 20250408
  Serious: Yes (Other)
  Sender: PFIZER
  Company Number: US-PFIZER INC-PV202500012599

PATIENT
  Age: 12 Month
  Sex: Male

DRUGS (2)
  1. EPINEPHRINE [Suspect]
     Active Substance: EPINEPHRINE
     Indication: Urethral repair
  2. EPINEPHRINE [Suspect]
     Active Substance: EPINEPHRINE
     Indication: Haemostasis

REACTIONS (8)
  - Product label issue [Unknown]
  - Incorrect dose administered [Unknown]
  - Ischaemia [Recovered/Resolved]
  - Tachycardia [Recovered/Resolved]
  - Electrocardiogram abnormal [Recovered/Resolved]
  - Hypertension [Recovered/Resolved]
  - Off label use [Unknown]
  - Off label use [Unknown]
